FAERS Safety Report 16601971 (Version 2)
Quarter: 2019Q3

REPORT INFORMATION
  Report Type: Spontaneous
  Country: PT (occurrence: PT)
  Receive Date: 20190719
  Receipt Date: 20190828
  Transmission Date: 20191004
  Serious: Yes (Hospitalization, Other)
  Sender: FDA-Public Use
  Company Number: PT-NOVOPROD-673211

PATIENT
  Sex: Female
  Weight: 74 kg

DRUGS (2)
  1. MIXTARD HUMAN 70/30 [Suspect]
     Active Substance: INSULIN HUMAN
     Indication: TYPE 2 DIABETES MELLITUS
     Dosage: 38 IU, QD (24 U AT BREAKFAST AND 14 U AT DINNER)
     Route: 058
  2. NOVORAPID [Suspect]
     Active Substance: INSULIN ASPART
     Indication: TYPE 2 DIABETES MELLITUS
     Dosage: 6 IU, QD (AT LUNCH  AND SOME UNITS AT AFTERNOON MEAL )
     Route: 065

REACTIONS (2)
  - Blood glucose increased [Recovering/Resolving]
  - Pneumonia [Unknown]
